FAERS Safety Report 8157543-7 (Version None)
Quarter: 2012Q1

REPORT INFORMATION
  Report Type: 
  Country: None (occurrence: None)
  Receive Date: 20120222
  Receipt Date: 20110802
  Transmission Date: 20120608
  Serious: No
  Sender: FDA-Public Use
  Company Number: US-ASTRAZENECA-2011SE46683

PATIENT
  Age: 77 Year
  Sex: Female

DRUGS (12)
  1. CLINDAMYCIN PHOSPHATE 1% SOLUTION [Concomitant]
  2. POTASSIUM 99 MG [Concomitant]
  3. COUMADIN [Concomitant]
  4. EMGEL 2% GEL [Concomitant]
  5. ATACAND [Concomitant]
  6. FISH OIL 1.000 MG [Concomitant]
  7. AMITRIPTYLINE HCL [Concomitant]
  8. ATENOLOL [Suspect]
     Route: 048
  9. FUROSEMIDE [Concomitant]
  10. MULTIVITAMIN [Concomitant]
  11. CARVEDILOL [Concomitant]
  12. RETIN-A 0.01% GEL [Concomitant]

REACTIONS (1)
  - COUGH [None]
